FAERS Safety Report 9173221 (Version 1)
Quarter: 2013Q1

REPORT INFORMATION
  Report Type: Spontaneous
  Country: TR (occurrence: None)
  Receive Date: 20130314
  Receipt Date: 20130314
  Transmission Date: 20140127
  Serious: Yes (Other)
  Sender: FDA-Public Use
  Company Number: TR-ALKEM-000017

PATIENT
  Age: 67 Year
  Sex: Female

DRUGS (2)
  1. GABAPENTIN (GABAPENTIN) [Suspect]
     Indication: TRIGEMINAL NEURALGIA
  2. CARBAMAZEPINE (CARBAMAZEPINE) CHEWABLE TABLET [Suspect]
     Indication: TRIGEMINAL NEURALGIA

REACTIONS (3)
  - Intraocular pressure increased [None]
  - Inappropriate schedule of drug administration [None]
  - Off label use [None]
